FAERS Safety Report 4853745-3 (Version None)
Quarter: 2005Q4

REPORT INFORMATION
  Report Type: 
  Country: None (occurrence: None)
  Receive Date: 20051214
  Receipt Date: 20051102
  Transmission Date: 20060501
  Serious: Yes (Hospitalization, Other)
  Sender: FDA-Public Use
  Company Number: PHBS2005JP16305

PATIENT
  Age: 64 Year
  Sex: Female
  Weight: 34 kg

DRUGS (11)
  1. PARLODEL [Suspect]
     Indication: PARKINSONISM
     Dosage: 2.5 MG, QD
     Route: 048
     Dates: start: 20050722, end: 20050804
  2. PARLODEL [Suspect]
     Dosage: 7.5 MG, QD
     Route: 048
     Dates: start: 20050805, end: 20051005
  3. PARLODEL [Suspect]
     Dosage: 10 MG, QD
     Route: 048
     Dates: start: 20051006, end: 20051019
  4. PARLODEL [Suspect]
     Dosage: 12.5 MG, QD
     Route: 048
     Dates: start: 20051020, end: 20051026
  5. SOLANAX [Concomitant]
     Indication: ANXIETY
     Dosage: 1.2 MG, UNK
     Route: 048
     Dates: start: 20050615, end: 20051025
  6. FERROMIA [Concomitant]
     Indication: ANAEMIA
     Dosage: 1 DF, UNK
     Route: 048
     Dates: start: 20050615
  7. SILECE [Concomitant]
     Indication: INSOMNIA
     Dosage: 1 MG, UNK
     Route: 048
     Dates: start: 20050615, end: 20051025
  8. LANDSEN [Concomitant]
     Indication: INSOMNIA
     Dosage: 2 MG, UNK
     Route: 048
     Dates: start: 20050615, end: 20051025
  9. SENNARIDE [Concomitant]
     Indication: CONSTIPATION
     Dosage: 2 DF, UNK
     Route: 048
     Dates: start: 20050623
  10. AKINETON [Concomitant]
     Indication: PARKINSONISM
     Dosage: 2 MG, UNK
     Route: 048
     Dates: start: 20050623, end: 20051025
  11. NITRAZEPAM [Concomitant]
     Indication: INSOMNIA
     Route: 048
     Dates: start: 20051026

REACTIONS (11)
  - BLOOD PRESSURE INCREASED [None]
  - CONVULSION [None]
  - DIARRHOEA [None]
  - EYE ROLLING [None]
  - FAECAL INCONTINENCE [None]
  - GRAND MAL CONVULSION [None]
  - LACUNAR INFARCTION [None]
  - LOSS OF CONSCIOUSNESS [None]
  - MIOSIS [None]
  - TONIC CONVULSION [None]
  - VOMITING [None]
